FAERS Safety Report 15983265 (Version 9)
Quarter: 2021Q3

REPORT INFORMATION
  Report Type: Report from Study
  Country: None (occurrence: JP)
  Receive Date: 20190220
  Receipt Date: 20210802
  Transmission Date: 20211014
  Serious: Yes (Hospitalization)
  Sender: FDA-Public Use
  Company Number: JP-ABBVIE-18S-087-2599342-00

PATIENT
  Age: 70 Year
  Sex: Male
  Weight: 56 kg

DRUGS (7)
  1. DUODOPA [Suspect]
     Active Substance: CARBIDOPA\LEVODOPA
     Dosage: MD: 11.3 ML CD: 3.3 ML/HR X 16 HRS
     Route: 050
     Dates: start: 20180926
  2. ROTIGOTINE [Concomitant]
     Active Substance: ROTIGOTINE
     Indication: PARKINSON^S DISEASE
     Route: 062
  3. DUODOPA [Suspect]
     Active Substance: CARBIDOPA\LEVODOPA
     Dosage: MD: 9.3 ML CD: 2.7 ML/HR X 16 HRS
     Route: 050
     Dates: start: 20180919, end: 20180920
  4. DUODOPA [Suspect]
     Active Substance: CARBIDOPA\LEVODOPA
     Route: 050
  5. MECOBALAMIN [Concomitant]
     Active Substance: METHYLCOBALAMIN
     Indication: VITAMIN SUPPLEMENTATION
     Route: 048
     Dates: start: 20180928
  6. DUODOPA [Suspect]
     Active Substance: CARBIDOPA\LEVODOPA
     Indication: PARKINSON^S DISEASE
     Dosage: MD: 9.3 ML CD: 2.4 ML/HR X 16 HRS
     Route: 050
     Dates: start: 20180913, end: 20180918
  7. DUODOPA [Suspect]
     Active Substance: CARBIDOPA\LEVODOPA
     Dosage: MD: 9.3 ML CD: 3.0 ML/HR X 16 HRS ED: 1 ML/UNIT
     Route: 050
     Dates: start: 20180921, end: 20180925

REACTIONS (13)
  - Musculoskeletal stiffness [Not Recovered/Not Resolved]
  - Neuropathy peripheral [Recovered/Resolved with Sequelae]
  - Emotional distress [Recovering/Resolving]
  - Device dislocation [Unknown]
  - Mobility decreased [Unknown]
  - Tinnitus [Recovering/Resolving]
  - Vitamin B12 decreased [Recovered/Resolved]
  - Pain in extremity [Unknown]
  - Muscular weakness [Unknown]
  - Gait inability [Unknown]
  - Hypovitaminosis [Recovering/Resolving]
  - Device connection issue [Recovered/Resolved]
  - Hyperhomocysteinaemia [Recovering/Resolving]

NARRATIVE: CASE EVENT DATE: 2018
